FAERS Safety Report 11654863 (Version 1)
Quarter: 2015Q4

REPORT INFORMATION
  Report Type: Spontaneous
  Country: US (occurrence: None)
  Receive Date: 20151022
  Receipt Date: 20151022
  Transmission Date: 20160304
  Serious: Yes (Other)
  Sender: FDA-Public Use
  Company Number: None

PATIENT
  Age: 63 Year
  Sex: Female
  Weight: 158 kg

DRUGS (11)
  1. ATENOLOL. [Concomitant]
     Active Substance: ATENOLOL
  2. CLONIDINE. [Concomitant]
     Active Substance: CLONIDINE
  3. CYMBALTA [Concomitant]
     Active Substance: DULOXETINE HYDROCHLORIDE
  4. NORCO [Concomitant]
     Active Substance: ACETAMINOPHEN\HYDROCODONE BITARTRATE
  5. FUROSEMIDE. [Concomitant]
     Active Substance: FUROSEMIDE
  6. PROLIA [Suspect]
     Active Substance: DENOSUMAB
     Indication: HYPOCALCAEMIA
     Dosage: EVERY 6 MONTHS
     Route: 058
     Dates: start: 20151015
  7. LISINOPRIL. [Concomitant]
     Active Substance: LISINOPRIL
  8. ASPIRIN. [Concomitant]
     Active Substance: ASPIRIN
  9. CALCIUM/VIT D [Concomitant]
  10. ALBUTEROL. [Concomitant]
     Active Substance: ALBUTEROL
  11. ALPRAZOLAM. [Concomitant]
     Active Substance: ALPRAZOLAM

REACTIONS (4)
  - Hypertension [None]
  - Fatigue [None]
  - Dyspnoea [None]
  - Chills [None]

NARRATIVE: CASE EVENT DATE: 20151021
